FAERS Safety Report 15924313 (Version 3)
Quarter: 2019Q2

REPORT INFORMATION
  Report Type: Spontaneous
  Country: RO (occurrence: RO)
  Receive Date: 20190206
  Receipt Date: 20190429
  Transmission Date: 20190711
  Serious: Yes (Life-Threatening, Hospitalization, Other)
  Sender: FDA-Public Use
  Company Number: RO-AUROBINDO-AUR-APL-2019-005782

PATIENT

DRUGS (3)
  1. PARACETAMOL [Suspect]
     Active Substance: ACETAMINOPHEN
     Indication: NASOPHARYNGITIS
     Dosage: 500 MG, A TABLET
     Route: 065
  2. ESOMEPRAZOLE. [Suspect]
     Active Substance: ESOMEPRAZOLE MAGNESIUM
     Indication: CHRONIC GASTRITIS
     Dosage: 20 MILLIGRAM, DAILY
     Route: 065
  3. IBUPROFEN FILM COATED TABLET [Suspect]
     Active Substance: IBUPROFEN SODIUM
     Indication: DYSMENORRHOEA
     Dosage: 200 MG, A TABLET
     Route: 048

REACTIONS (14)
  - Dyspnoea [Recovered/Resolved]
  - Rash pruritic [Recovered/Resolved]
  - Loss of consciousness [Recovered/Resolved]
  - Pruritus [Recovered/Resolved]
  - Angioedema [Recovered/Resolved]
  - Sneezing [Recovered/Resolved]
  - Wheezing [Recovered/Resolved]
  - Hypersensitivity [Recovered/Resolved]
  - Abdominal pain [Recovered/Resolved]
  - Type I hypersensitivity [Recovered/Resolved]
  - Urticaria [Recovered/Resolved]
  - Pruritus allergic [Recovering/Resolving]
  - Anaphylactic reaction [Not Recovered/Not Resolved]
  - Urinary incontinence [Recovered/Resolved]
